FAERS Safety Report 9000661 (Version 2)
Quarter: 2013Q1

REPORT INFORMATION
  Report Type: Spontaneous
  Country: GB (occurrence: None)
  Receive Date: 20121226
  Receipt Date: 20130128
  Transmission Date: 20140127
  Serious: Yes (Hospitalization)
  Sender: FDA-Public Use
  Company Number: DSA_61541_2012

PATIENT
  Age: 72 Year
  Sex: Male

DRUGS (11)
  1. 5-FU (FLUOROURACIL) [Suspect]
     Indication: COLORECTAL CANCER METASTATIC
     Dosage: 400 MG/M2 EVERY CYCLE INTRAVENOUS BOLUS
     Route: 040
     Dates: start: 20120925, end: 20120925
  2. AFLIBERCEPT [Suspect]
     Indication: COLORECTAL CANCER METASTATIC
     Dosage: 4 MG/KG; EVERY CYCLE INTRAVENOUS DRIP
     Route: 041
     Dates: start: 20120925, end: 20120925
  3. IRINOTECAN (IRINOTECAN) [Suspect]
     Indication: COLORECTAL CANCER METASTATIC
     Dosage: 180 MG/M2 ; EVERY CYCLE INTRAVENOUS DRIP
     Route: 041
     Dates: start: 20120925, end: 20120925
  4. LEUCOVORIN /00566701/ (LEUCOVORIN-FOLINIC ACID) [Suspect]
     Indication: COLORECTAL CANCER METASTATIC
     Dosage: 400 MG/M2; EVERY INTRAVENOUS DRIP
     Route: 041
     Dates: start: 20120925, end: 20120925
  5. CALCIUM CHANNEL BLOCKERS [Concomitant]
  6. ANTIFUNGALS [Concomitant]
  7. ANGIOTENSIN II ANTAGONISTS, PLAIN [Concomitant]
  8. LOPERAMIDE [Concomitant]
  9. BETA BLOCKING AGENTS [Concomitant]
  10. DIFFLAM [Concomitant]
  11. DIURETICS [Concomitant]

REACTIONS (3)
  - Pneumonia [None]
  - Neutropenia [None]
  - Deep vein thrombosis [None]
